FAERS Safety Report 4441755-X (Version None)
Quarter: 2004Q3

REPORT INFORMATION
  Report Type: 
  Country: None (occurrence: None)
  Receive Date: 20040903
  Receipt Date: 20040823
  Transmission Date: 20050211
  Serious: Yes (Other)
  Sender: FDA-Public Use
  Company Number: 2004053996

PATIENT
  Age: 39 Year
  Sex: Female
  Weight: 61.2356 kg

DRUGS (4)
  1. SUDAFED SINUS HEADACHE CAPLETS (PARACETAMOL, PSEUDOEPHEDRINE) [Suspect]
     Indication: NASAL CONGESTION
     Dosage: 2 CAPLETS TWO TIMES, ORAL
     Route: 048
     Dates: start: 20040802, end: 20040802
  2. OXYMETAZOLINE HYDROCHLORIDE (OXYMETAZOLINE HYDROCHLORIDE) [Suspect]
     Indication: NASAL CONGESTION
     Dosage: 2 SPRAYS PER NOSTRIL TWO
     Dates: start: 20040802, end: 20040802
  3. DILANTIN [Suspect]
     Indication: CONVULSION
     Dosage: 300 MG DAILY ORAL
     Route: 048
     Dates: start: 20040803
  4. CONLUNETT (MESTRANOL, NORETHISTERONE) [Concomitant]

REACTIONS (3)
  - CONVULSION [None]
  - EMOTIONAL DISTRESS [None]
  - FATIGUE [None]
